FAERS Safety Report 16160972 (Version 4)
Quarter: 2019Q2

REPORT INFORMATION
  Report Type: Report from Study
  Country: US (occurrence: US)
  Receive Date: 20190405
  Receipt Date: 20190515
  Transmission Date: 20190711
  Serious: Yes (Hospitalization)
  Sender: FDA-Public Use
  Company Number: PHEH2019US014065

PATIENT
  Sex: Male

DRUGS (2)
  1. ENTRESTO [Suspect]
     Active Substance: SACUBITRIL\VALSARTAN
     Dosage: 50 MG, (24 MG SACUBITRIL, 26 MG VALSARTAN) BID
     Route: 048
  2. ENTRESTO [Suspect]
     Active Substance: SACUBITRIL\VALSARTAN
     Indication: CARDIAC FAILURE
     Dosage: 100 MG, (49 MG SACUBITRIL, 51 MG VALSARTAN) BID
     Route: 048

REACTIONS (3)
  - Loss of consciousness [Unknown]
  - Hypotension [Unknown]
  - Somnolence [Unknown]
